FAERS Safety Report 15354760 (Version 1)
Quarter: 2018Q3

REPORT INFORMATION
  Report Type: Spontaneous
  Country: FR (occurrence: FR)
  Receive Date: 20180906
  Receipt Date: 20180906
  Transmission Date: 20181010
  Serious: Yes (Other)
  Sender: FDA-Public Use
  Company Number: FR-AUROBINDO-AUR-APL-2018-044380

PATIENT
  Sex: Female
  Weight: 2.21 kg

DRUGS (1)
  1. PARACETAMOL [Suspect]
     Active Substance: ACETAMINOPHEN
     Indication: MYALGIA
     Dosage: 1 GRAM, DAILY, (1 G PER DAY FOR 7 DAYS AT 34 WEEKS^ GESTATION AND FOR 3CONSECUTIVEDAYS AT 36WEEKS)
     Route: 064

REACTIONS (3)
  - Low birth weight baby [Unknown]
  - Ductus arteriosus premature closure [Unknown]
  - Foetal exposure during pregnancy [Unknown]
